FAERS Safety Report 11915530 (Version 1)
Quarter: 2016Q1

REPORT INFORMATION
  Report Type: Spontaneous
  Country: US (occurrence: None)
  Receive Date: 20160113
  Receipt Date: 20160113
  Transmission Date: 20160526
  Serious: Yes (Hospitalization)
  Sender: FDA-Public Use
  Company Number: None

PATIENT
  Age: 63 Year
  Sex: Male
  Weight: 99.8 kg

DRUGS (1)
  1. ALIROCUMAB 150 MG/ML SANOFI-AVENTIS [Suspect]
     Active Substance: ALIROCUMAB
     Indication: HYPERLIPIDAEMIA
     Dosage: 150 MG/ML, Q2 WEEKS
     Route: 058
     Dates: start: 20151030, end: 20151113

REACTIONS (3)
  - Arthralgia [None]
  - Pancreatitis [None]
  - Influenza like illness [None]

NARRATIVE: CASE EVENT DATE: 20151115
